FAERS Safety Report 12079472 (Version 1)
Quarter: 2016Q1

REPORT INFORMATION
  Report Type: Spontaneous
  Country: US (occurrence: None)
  Receive Date: 20160212
  Receipt Date: 20160212
  Transmission Date: 20160526
  Serious: Yes (Other)
  Sender: FDA-Public Use
  Company Number: None

PATIENT
  Age: 79 Year
  Sex: Female
  Weight: 40.82 kg

DRUGS (1)
  1. WARFARIN, GENERIC FOR COUMADIN, BOTH 4MG AND 2.5MG TAB CIT [Suspect]
     Active Substance: WARFARIN
     Indication: ANTICOAGULANT THERAPY
     Dosage: 2.5 MG   4 MG VARIES AS PER NR  AT BEDTIME BY MOUTH
     Route: 048
     Dates: start: 20151202

REACTIONS (4)
  - Product physical issue [None]
  - Product colour issue [None]
  - Product dosage form confusion [None]
  - Product shape issue [None]

NARRATIVE: CASE EVENT DATE: 20151202
